FAERS Safety Report 8246970-5 (Version None)
Quarter: 2012Q1

REPORT INFORMATION
  Report Type: 
  Country: None (occurrence: None)
  Receive Date: 20120330
  Receipt Date: 20120321
  Transmission Date: 20120608
  Serious: Yes (Hospitalization)
  Sender: FDA-Public Use
  Company Number: JP-SANOFI-AVENTIS-2012SA021828

PATIENT
  Age: 90 Year
  Sex: Female

DRUGS (8)
  1. ZOLPIDEM [Suspect]
     Route: 048
  2. TRITEREN [Concomitant]
  3. MUCODYNE [Concomitant]
  4. ETIZOLAM [Concomitant]
  5. PRAVASTATIN SODIUM [Concomitant]
     Route: 048
  6. ALFAROL [Concomitant]
  7. PROPRANOLOL HYDROCHLORIDE [Concomitant]
  8. CELECOXIB [Suspect]
     Route: 048
     Dates: start: 20120207, end: 20120209

REACTIONS (1)
  - MYOSITIS [None]
